FAERS Safety Report 12195554 (Version 1)
Quarter: 2016Q1

REPORT INFORMATION
  Report Type: Spontaneous
  Country: CH (occurrence: SE)
  Receive Date: 20160321
  Receipt Date: 20160321
  Transmission Date: 20160526
  Serious: Yes (Other)
  Sender: FDA-Public Use
  Company Number: CH-LPDUSPRD-20160227

PATIENT
  Age: 27 Year
  Sex: Female

DRUGS (1)
  1. FERINJECT [Suspect]
     Active Substance: FERRIC CARBOXYMALTOSE
     Dosage: 1 GM
     Route: 041
     Dates: start: 20140325, end: 20140325

REACTIONS (4)
  - Pruritus [Unknown]
  - Off label use [Recovered/Resolved]
  - Throat irritation [Unknown]
  - Angioedema [Unknown]

NARRATIVE: CASE EVENT DATE: 20140325
